FAERS Safety Report 14406463 (Version 1)
Quarter: 2018Q1

REPORT INFORMATION
  Report Type: Report from Study
  Country: DE (occurrence: DE)
  Receive Date: 20180118
  Receipt Date: 20180118
  Transmission Date: 20180509
  Serious: Yes (Life-Threatening, Hospitalization, Disabling, Other)
  Sender: FDA-Public Use
  Company Number: DE-JNJFOC-20180120226

PATIENT
  Age: 4 Month
  Sex: Female
  Weight: 60 kg

DRUGS (15)
  1. BISOPROLOL [Concomitant]
     Active Substance: BISOPROLOL
     Route: 065
  2. TORASEMID [Concomitant]
     Active Substance: TORSEMIDE
     Route: 065
  3. RAMIPRIL. [Concomitant]
     Active Substance: RAMIPRIL
     Route: 065
  4. ATORVASTATIN [Concomitant]
     Active Substance: ATORVASTATIN
     Route: 065
  5. UNACID (AMPICILLIN SODIUM, SULBACTAM SODIUM) [Concomitant]
     Active Substance: AMPICILLIN SODIUM\SULBACTAM SODIUM
     Indication: PNEUMONIA ASPIRATION
     Route: 065
  6. AMLODIPIN [Concomitant]
     Active Substance: AMLODIPINE BESYLATE
     Route: 065
  7. DEKRISTOL [Concomitant]
     Active Substance: CHOLECALCIFEROL
     Route: 065
  8. AMPICILLIN [Concomitant]
     Active Substance: AMPICILLIN
     Route: 065
  9. DIGITOXIN [Concomitant]
     Active Substance: DIGITOXIN
     Route: 065
  10. XARELTO [Suspect]
     Active Substance: RIVAROXABAN
     Indication: ATRIAL FIBRILLATION
     Route: 048
     Dates: end: 20171204
  11. ACTRAPHANE [Concomitant]
     Active Substance: INSULIN HUMAN
     Dosage: DOSAGE: 14-0-10 I.E
     Route: 065
  12. COLECALCIFEROL [Concomitant]
     Active Substance: CHOLECALCIFEROL
     Route: 048
  13. PANTOPRAZOLE [Concomitant]
     Active Substance: PANTOPRAZOLE
     Route: 065
  14. XARELTO [Concomitant]
     Active Substance: RIVAROXABAN
     Route: 048
  15. PALEXIA [Concomitant]
     Active Substance: TAPENTADOL HYDROCHLORIDE
     Route: 065

REACTIONS (1)
  - Cerebral infarction [Not Recovered/Not Resolved]

NARRATIVE: CASE EVENT DATE: 20171204
